FAERS Safety Report 9218171 (Version 1)
Quarter: 2013Q2

REPORT INFORMATION
  Report Type: Spontaneous
  Country: JP (occurrence: JP)
  Receive Date: 20130408
  Receipt Date: 20130408
  Transmission Date: 20140414
  Serious: Yes (Other)
  Sender: FDA-Public Use
  Company Number: PHHY2013JP033010

PATIENT
  Age: 61 Year
  Sex: Female

DRUGS (5)
  1. ESANBUTOL [Suspect]
     Indication: MYCOBACTERIUM TUBERCULOSIS COMPLEX TEST POSITIVE
     Dosage: 0.75 G, UNK
     Route: 048
  2. ISONIAZID [Suspect]
     Indication: MYCOBACTERIUM TUBERCULOSIS COMPLEX TEST POSITIVE
     Dosage: 0.3 G, UNK
  3. RIFAMPICIN [Suspect]
     Indication: MYCOBACTERIUM TUBERCULOSIS COMPLEX TEST POSITIVE
     Dosage: 0.45 G, UNK
     Route: 048
  4. RIFAMPICIN [Suspect]
     Dosage: 0.45 G, UNK
     Route: 048
  5. PYRAZINAMIDE [Suspect]
     Indication: MYCOBACTERIUM TUBERCULOSIS COMPLEX TEST POSITIVE
     Dosage: 1.2 G, UNK
     Route: 048

REACTIONS (9)
  - Liver disorder [Recovered/Resolved]
  - Aspartate aminotransferase increased [Recovered/Resolved]
  - Alanine aminotransferase increased [Recovered/Resolved]
  - Shock [Recovered/Resolved]
  - Anuria [Recovered/Resolved]
  - Vomiting [Recovered/Resolved]
  - Pyrexia [Recovered/Resolved]
  - Blood pressure decreased [Recovered/Resolved]
  - Hypotonia [Recovered/Resolved]
